FAERS Safety Report 20925387 (Version 5)
Quarter: 2022Q3

REPORT INFORMATION
  Report Type: Spontaneous
  Country: FR (occurrence: FR)
  Receive Date: 20220607
  Receipt Date: 20220823
  Transmission Date: 20221027
  Serious: Yes (Life-Threatening, Hospitalization, Other)
  Sender: FDA-Public Use
  Company Number: None

PATIENT
  Age: 83 Year
  Sex: Female

DRUGS (41)
  1. ROSUVASTATIN [Suspect]
     Active Substance: ROSUVASTATIN
     Indication: Hypercholesterolaemia
     Dosage: 10 MILLIGRAM, QD
     Route: 048
  2. ROSUVASTATIN [Suspect]
     Active Substance: ROSUVASTATIN
     Dosage: 10 MILLIGRAM, QD
     Route: 065
  3. BROMAZEPAM [Suspect]
     Active Substance: BROMAZEPAM
     Indication: Anxiety
     Dosage: 6 MILLIGRAM, QD (6 MG, DAILY)
     Route: 048
  4. IVABRADINE [Suspect]
     Active Substance: IVABRADINE
     Indication: Angina pectoris
     Dosage: 10 MILLIGRAM, QD (10 MG, DAILY)
     Route: 048
  5. CANDESARTAN [Suspect]
     Active Substance: CANDESARTAN
     Indication: Hypertension
     Dosage: 2 MILLIGRAM, QD(DAILY)
     Route: 048
  6. CLOPIDOGREL BISULFATE [Suspect]
     Active Substance: CLOPIDOGREL BISULFATE
     Indication: Myocardial infarction
     Dosage: 75 MILLIGRAM, QD (75 MG, DAILY)
     Route: 048
  7. CLOPIDOGREL BISULFATE [Suspect]
     Active Substance: CLOPIDOGREL BISULFATE
     Indication: Myocardial infarction
     Dosage: 75 MILLIGRAM, QD
     Route: 048
  8. PLAVIX [Suspect]
     Active Substance: CLOPIDOGREL BISULFATE
     Indication: Myocardial infarction
     Dosage: 75 MILLIGRAM, QD, 75 MG, DAILY
     Route: 065
  9. PLAVIX [Suspect]
     Active Substance: CLOPIDOGREL BISULFATE
     Dosage: 75 MILLIGRAM, QD
     Route: 065
  10. VIDAZA [Suspect]
     Active Substance: AZACITIDINE
     Indication: Acute leukaemia
     Dosage: UNK UNK, MONTHLY
     Route: 059
     Dates: start: 20200825, end: 20210511
  11. VIDAZA [Suspect]
     Active Substance: AZACITIDINE
     Dosage: UNK, (7TH COURSE)/10-FEB-2021
     Route: 059
     Dates: end: 20210216
  12. VIDAZA [Suspect]
     Active Substance: AZACITIDINE
     Dosage: UNK, (7TH COURSE)/10-FEB-2021
     Route: 059
     Dates: end: 20210216
  13. LEVOTHYROXINE [Suspect]
     Active Substance: LEVOTHYROXINE
     Indication: Hypothyroidism
     Dosage: 75 MICROGRAM, QD (75 UG, DAILY)
     Route: 048
  14. ONDANSETRON [Suspect]
     Active Substance: ONDANSETRON
     Indication: Antiemetic supportive care
     Dosage: 16 MILLIGRAM, QD (8 MG, BID)/10-MAR-2021
     Route: 042
     Dates: end: 20210316
  15. ONDANSETRON [Suspect]
     Active Substance: ONDANSETRON
     Dosage: 16 MILLIGRAM, QD (8 MG, BID)/08-APR-2021
     Route: 042
     Dates: end: 20210413
  16. ONDANSETRON [Suspect]
     Active Substance: ONDANSETRON
     Dosage: 16 MILLIGRAM, QD (8 MG, BID)/13-JAN-2021
     Route: 042
     Dates: end: 20210119
  17. ONDANSETRON [Suspect]
     Active Substance: ONDANSETRON
     Dosage: 16 MILLIGRAM, QD (8 MG, BID)/08-NOV-2020
     Route: 042
     Dates: end: 20201124
  18. ONDANSETRON [Suspect]
     Active Substance: ONDANSETRON
     Dosage: 16 MILLIGRAM, QD (8 MG, BID)/16-DEC-2020
     Route: 042
     Dates: end: 20201223
  19. ONDANSETRON [Suspect]
     Active Substance: ONDANSETRON
     Dosage: 16 MILLIGRAM, QD (8 MG, BID)/05-MAY-2021
     Route: 042
     Dates: end: 20210511
  20. ONDANSETRON [Suspect]
     Active Substance: ONDANSETRON
     Dosage: 16 MILLIGRAM, QD (8 MG, BID)/05-MAY-2021
     Route: 042
     Dates: end: 20210511
  21. ONDANSETRON [Suspect]
     Active Substance: ONDANSETRON
     Dosage: 16 MILLIGRAM, QD (8 MG, BID)/10-FEB-2021
     Route: 042
     Dates: end: 20210216
  22. ONDANSETRON [Suspect]
     Active Substance: ONDANSETRON
     Dosage: 8 MILLIGRAM, QD (8 MG IN THE MORNING)/18-JUN-2021
     Route: 042
     Dates: end: 20210618
  23. ONDANSETRON [Suspect]
     Active Substance: ONDANSETRON
     Dosage: 16 MILLIGRAM, QD (8 MG, BID)/17-JUN-2021
     Route: 042
     Dates: end: 20210618
  24. ONDANSETRON [Suspect]
     Active Substance: ONDANSETRON
     Dosage: UNK, MONTHLY
     Route: 042
     Dates: start: 20200825, end: 20210618
  25. ONDANSETRON [Suspect]
     Active Substance: ONDANSETRON
     Dosage: UNK, MONTHLY (QMO)
     Route: 042
     Dates: start: 20200825, end: 20220618
  26. ONDANSETRON [Suspect]
     Active Substance: ONDANSETRON
     Dosage: 16 MILLIGRAM, QD(8 MG, BID)/21-OCT-2020
     Route: 042
     Dates: end: 20201027
  27. VIDAZA [Suspect]
     Active Substance: AZACITIDINE
     Indication: Acute leukaemia
     Dosage: UNK, QD(2ND COURSE)
     Route: 065
     Dates: start: 20200923, end: 20200929
  28. VIDAZA [Suspect]
     Active Substance: AZACITIDINE
     Dosage: UNK, QD (7TH COURSE)/10-FEB-2021
     Route: 065
     Dates: end: 20210216
  29. VIDAZA [Suspect]
     Active Substance: AZACITIDINE
     Dosage: UNK, QD (10TH COURSE)/05-MAY-2021
     Route: 065
     Dates: end: 20210511
  30. VIDAZA [Suspect]
     Active Substance: AZACITIDINE
     Dosage: UNK, QD (6TH COURSE)/13-JAN-2021
     Route: 065
     Dates: end: 20210119
  31. VIDAZA [Suspect]
     Active Substance: AZACITIDINE
     Dosage: UNK, QD (3RD COURSE)/21-OCT-2020
     Route: 065
     Dates: end: 20201027
  32. VIDAZA [Suspect]
     Active Substance: AZACITIDINE
     Dosage: UNK, QD(8TH COURSE)/10-MAR-2021
     Route: 065
     Dates: end: 20210316
  33. VIDAZA [Suspect]
     Active Substance: AZACITIDINE
     Dosage: UNK, QD(5TH COURSE)/16-DEC-2020
     Route: 065
     Dates: end: 20201223
  34. VIDAZA [Suspect]
     Active Substance: AZACITIDINE
     Dosage: UNK, QD(9TH COURSE)/08-APR-2021 00:00
     Route: 065
     Dates: end: 20210413
  35. VIDAZA [Suspect]
     Active Substance: AZACITIDINE
     Dosage: UNK, QD(4TH COURSE)/18-NOV-2020
     Route: 065
     Dates: end: 20201124
  36. VIDAZA [Suspect]
     Active Substance: AZACITIDINE
     Indication: Acute leukaemia
     Dosage: 130 MILLIGRAM, QD,(DAILY) (75 MG/M2/DAY)
     Route: 058
     Dates: start: 20200825, end: 20200831
  37. VALACYCLOVIR HYDROCHLORIDE [Concomitant]
     Active Substance: VALACYCLOVIR HYDROCHLORIDE
     Indication: Antiviral prophylaxis
     Dosage: 1 GRAM, QD
     Route: 065
     Dates: start: 20200812
  38. VALACYCLOVIR HYDROCHLORIDE [Concomitant]
     Active Substance: VALACYCLOVIR HYDROCHLORIDE
     Dosage: 1 GRAM, QD (1 G, DAILY)
     Route: 065
     Dates: start: 20200817
  39. PANTOPRAZOLE [Concomitant]
     Active Substance: PANTOPRAZOLE
     Indication: Gastrooesophageal reflux disease
     Dosage: 40 MILLIGRAM, QD (40 MG, DAILY)
     Route: 065
  40. CYTARABINE [Concomitant]
     Active Substance: CYTARABINE
     Indication: Product used for unknown indication
     Dosage: 50 MILLIGRAM, BID (50 MG, (MORNING AND EVENING FROM 5 DAYS)
     Route: 065
  41. XYLOCAINE [Concomitant]
     Active Substance: LIDOCAINE HYDROCHLORIDE
     Indication: Product used for unknown indication
     Dosage: 1 MILLILITER (1 ML (10 MG/ML)
     Route: 065

REACTIONS (5)
  - Agranulocytosis [Unknown]
  - Bronchospasm [Recovered/Resolved]
  - Urticaria [Not Recovered/Not Resolved]
  - Rash [Unknown]
  - Angioedema [Recovered/Resolved]

NARRATIVE: CASE EVENT DATE: 20201005
